FAERS Safety Report 24327909 (Version 2)
Quarter: 2025Q3

REPORT INFORMATION
  Report Type: Spontaneous
  Country: AR (occurrence: AR)
  Receive Date: 20240917
  Receipt Date: 20250804
  Transmission Date: 20251021
  Serious: Yes (Hospitalization, Other)
  Sender: PFIZER
  Company Number: AR-PFIZER INC-PV202400120373

PATIENT
  Age: 42 Year
  Sex: Female
  Weight: 64 kg

DRUGS (5)
  1. METHYLPREDNISOLONE [Suspect]
     Active Substance: METHYLPREDNISOLONE
     Indication: Myasthenia gravis
     Dosage: 10 MG, 1X/DAY (10 MG / DAY (3 MONTHS) ORALLY)
     Route: 048
  2. CYCLOSPORINE [Suspect]
     Active Substance: CYCLOSPORINE
     Indication: Myasthenia gravis
     Dosage: 100 MG, 2X/DAY (100 MG TWO TIMES A DAY)
     Route: 048
  3. PYRIDOSTIGMINE [Concomitant]
     Active Substance: PYRIDOSTIGMINE
     Indication: Myasthenia gravis
     Dosage: 120 MG, 4X/DAY (120 MG SIX TIMES A DAY)
  4. PREGABALIN [Concomitant]
     Active Substance: PREGABALIN
     Dosage: 300 MG, 1X/DAY
  5. AMITRIPTYLINE [Concomitant]
     Active Substance: AMITRIPTYLINE
     Dosage: 75 MG, 1X/DAY

REACTIONS (3)
  - Erythromelalgia [Recovered/Resolved]
  - Skin ulcer [Recovered/Resolved]
  - Trench foot [Recovered/Resolved]
